FAERS Safety Report 6585424-9 (Version None)
Quarter: 2010Q1

REPORT INFORMATION
  Report Type: 
  Country: None (occurrence: None)
  Receive Date: 20100217
  Receipt Date: 20100209
  Transmission Date: 20100710
  Serious: Yes (Other)
  Sender: FDA-Public Use
  Company Number: B0601489A

PATIENT
  Sex: Male

DRUGS (3)
  1. RELENZA [Suspect]
     Indication: INFLUENZA
     Dosage: 5MG PER DAY
     Route: 055
     Dates: start: 20091028, end: 20091029
  2. RESPLEN [Suspect]
     Indication: BRONCHITIS
     Dosage: 20MG TWICE PER DAY
     Route: 048
     Dates: start: 20091028
  3. CALONAL [Suspect]
     Indication: ANTIPYRESIS
     Route: 048
     Dates: start: 20091029

REACTIONS (1)
  - ABNORMAL BEHAVIOUR [None]
